FAERS Safety Report 5294960-7 (Version None)
Quarter: 2007Q2

REPORT INFORMATION
  Report Type: 
  Country: None (occurrence: None)
  Receive Date: 20070412
  Receipt Date: 20070326
  Transmission Date: 20071010
  Serious: Yes (Hospitalization)
  Sender: FDA-Public Use
  Company Number: ES-ROCHE-490033

PATIENT
  Age: 35 Year
  Sex: Female

DRUGS (3)
  1. INVIRASE [Suspect]
     Indication: DRUG USE FOR UNKNOWN INDICATION
     Dosage: FORM REPORTED AS FILM COATED TABLET.
     Route: 048
     Dates: start: 20061015, end: 20061216
  2. NORVIR [Suspect]
     Indication: DRUG USE FOR UNKNOWN INDICATION
     Route: 048
     Dates: start: 20061015, end: 20061216
  3. TRIZIVIR [Suspect]
     Indication: DRUG USE FOR UNKNOWN INDICATION
     Dosage: FORM REPORTED AS COATED. DOSAGE REGIMEN REPORTED AS ONE FIXED DOSE.
     Route: 048
     Dates: start: 20061015, end: 20061216

REACTIONS (2)
  - APLASTIC ANAEMIA [None]
  - PALLOR [None]
